FAERS Safety Report 8119654 (Version 5)
Quarter: 2013Q3

REPORT INFORMATION
  Report Type: Report from Study
  Country: US (occurrence: US)
  Receive Date: 20110902
  Receipt Date: 20130828
  Transmission Date: 20140515
  Serious: Yes (Hospitalization, Other)
  Sender: FDA-Public Use
  Company Number: US-ABBOTT-11P-163-0850711-00

PATIENT
  Age: 23 Year
  Sex: Male
  Weight: 56.3 kg

DRUGS (13)
  1. HUMIRA 40 MG/0.8 ML PEN [Suspect]
     Indication: CROHN^S DISEASE
     Dosage: CROHN^S STARTER KIT, 1ST LOADING DOSE
     Route: 058
     Dates: start: 20110722, end: 20110722
  2. HUMIRA 40 MG/0.8 ML PEN [Suspect]
     Dosage: 2ND LOADING DOSE
     Route: 058
     Dates: start: 20110805, end: 20110805
  3. HUMIRA 40 MG/0.8 ML PEN [Suspect]
     Route: 058
     Dates: start: 20110813
  4. HUMIRA 40 MG/0.8 ML PEN [Suspect]
     Dates: start: 20130814
  5. PREDNISONE [Concomitant]
     Indication: PRODUCT USED FOR UNKNOWN INDICATION
     Route: 048
  6. OMEPRAZOLE [Concomitant]
     Indication: PRODUCT USED FOR UNKNOWN INDICATION
     Route: 048
  7. ONDANSETRON [Concomitant]
     Indication: NAUSEA
     Route: 048
  8. ELAVIL [Concomitant]
     Indication: PRODUCT USED FOR UNKNOWN INDICATION
     Route: 048
  9. PHENOBARBITAL [Concomitant]
     Indication: PRODUCT USED FOR UNKNOWN INDICATION
  10. LIBRAX [Concomitant]
     Indication: PRODUCT USED FOR UNKNOWN INDICATION
  11. ROXICET [Concomitant]
     Indication: PAIN
  12. TRAMADOL [Concomitant]
     Indication: PAIN
     Dosage: AS NEEDED OR DAILY
     Route: 048
     Dates: end: 20110825
  13. SUMATRIPTAN [Concomitant]
     Indication: NAUSEA
     Dosage: AS NEEDED OR DAILY
     Route: 048
     Dates: end: 20110825

REACTIONS (15)
  - Small intestinal obstruction [Not Recovered/Not Resolved]
  - Intestinal stenosis [Not Recovered/Not Resolved]
  - Abdominal adhesions [Not Recovered/Not Resolved]
  - Gastrointestinal inflammation [Not Recovered/Not Resolved]
  - Keratomileusis [Unknown]
  - Appendicitis [Not Recovered/Not Resolved]
  - Pain [Recovering/Resolving]
  - Nausea [Recovering/Resolving]
  - Large intestinal stenosis [Not Recovered/Not Resolved]
  - Large intestinal ulcer [Not Recovered/Not Resolved]
  - Post procedural infection [Unknown]
  - Fatigue [Not Recovered/Not Resolved]
  - Musculoskeletal discomfort [Not Recovered/Not Resolved]
  - Ear pain [Not Recovered/Not Resolved]
  - Oropharyngeal pain [Not Recovered/Not Resolved]
